FAERS Safety Report 7617985-2 (Version None)
Quarter: 2011Q3

REPORT INFORMATION
  Report Type: 
  Country: None (occurrence: None)
  Receive Date: 20110718
  Receipt Date: 20110705
  Transmission Date: 20111222
  Serious: Yes (Other)
  Sender: FDA-Public Use
  Company Number: PHHY2010CA19115

PATIENT
  Sex: Female
  Weight: 61 kg

DRUGS (3)
  1. ENSURE [Concomitant]
  2. SANDOSTATIN LAR [Suspect]
     Dosage: 60 MG, EVERY 4 WEEKS
     Route: 030
  3. SANDOSTATIN LAR [Suspect]
     Indication: METASTATIC CARCINOID TUMOUR
     Dosage: 90 MG EVERY 4 WEEKS
     Route: 030
     Dates: start: 20081230

REACTIONS (5)
  - HEPATIC NEOPLASM [None]
  - DIARRHOEA [None]
  - LOCALISED OEDEMA [None]
  - OEDEMA PERIPHERAL [None]
  - ABDOMINAL DISTENSION [None]
